FAERS Safety Report 9987193 (Version 1)
Quarter: 2014Q1

REPORT INFORMATION
  Report Type: Spontaneous
  Country: US (occurrence: US)
  Receive Date: 20140307
  Receipt Date: 20140307
  Transmission Date: 20141002
  Serious: Yes (Other)
  Sender: FDA-Public Use
  Company Number: US-AMGEN-USASP2014008051

PATIENT
  Age: 57 Year
  Sex: Female

DRUGS (2)
  1. ENBREL [Suspect]
     Indication: RHEUMATOID ARTHRITIS
     Dosage: 50 MG, QWK
     Route: 065
     Dates: start: 19990601
  2. HUMIRA [Concomitant]
     Dosage: UNK

REACTIONS (11)
  - Cellulitis [Recovered/Resolved]
  - Drug ineffective [Recovered/Resolved]
  - Gait disturbance [Recovered/Resolved]
  - Rheumatoid arthritis [Not Recovered/Not Resolved]
  - Insomnia [Not Recovered/Not Resolved]
  - Swelling [Recovered/Resolved]
  - Scratch [Recovered/Resolved]
  - Wound haemorrhage [Recovered/Resolved]
  - Mobility decreased [Recovered/Resolved]
  - Drug effect incomplete [Not Recovered/Not Resolved]
  - Laboratory test abnormal [Recovered/Resolved]
